FAERS Safety Report 8388540-4 (Version None)
Quarter: 2012Q2

REPORT INFORMATION
  Report Type: 
  Country: None (occurrence: None)
  Receive Date: 20120525
  Receipt Date: 20120522
  Transmission Date: 20120825
  Serious: Yes (Other)
  Sender: FDA-Public Use
  Company Number: PHHY2012GB019692

PATIENT
  Age: 81 Year
  Sex: Female
  Weight: 81 kg

DRUGS (14)
  1. LERCANIDIPINE [Interacting]
     Indication: HYPERTENSION
     Dosage: 10 MG, BID
     Dates: start: 20111115
  2. ALLOPURINOL [Concomitant]
     Dates: start: 20111115
  3. AMOXICILLIN AND CLAVULANATE POTASSIUM [Concomitant]
     Dates: start: 20111229, end: 20120112
  4. AMOXICILLIN AND CLAVULANATE POTASSIUM [Concomitant]
     Dates: start: 20120224
  5. SIMVASTATIN [Concomitant]
     Dates: start: 20111115
  6. ASPIRIN [Concomitant]
     Dates: start: 20120224
  7. ATENOLOL [Concomitant]
     Indication: SUPRAVENTRICULAR TACHYCARDIA
     Dosage: 50 MG, QD
     Dates: start: 20111115
  8. ALBUTEROL [Concomitant]
     Dates: start: 20111115, end: 20111213
  9. LISINOPRIL [Concomitant]
     Dates: start: 20111115
  10. QVAR 40 [Concomitant]
     Dates: start: 20120215
  11. ALBUTEROL [Concomitant]
     Dates: start: 20120215
  12. CLARITHROMYCIN [Suspect]
     Indication: LOWER RESPIRATORY TRACT INFECTION
     Dosage: 250 MG, QD
     Dates: start: 20120224
  13. QVAR 40 [Concomitant]
     Dates: start: 20111115, end: 20111213
  14. DOXAZOSIN MESYLATE [Concomitant]
     Dates: start: 20111115

REACTIONS (4)
  - ATRIAL FIBRILLATION [None]
  - DIZZINESS [None]
  - DRUG INTERACTION [None]
  - HYPOTENSION [None]
